FAERS Safety Report 5752268-7 (Version None)
Quarter: 2008Q2

REPORT INFORMATION
  Report Type: 
  Country: None (occurrence: None)
  Receive Date: 20080527
  Receipt Date: 20080506
  Transmission Date: 20081010
  Serious: Yes (Death)
  Sender: FDA-Public Use
  Company Number: 2008AL003697

PATIENT
  Sex: Female

DRUGS (1)
  1. DIGOXIN [Suspect]
     Indication: CARDIAC FAILURE CONGESTIVE
     Dosage: 0.25 MG, PO
     Route: 048

REACTIONS (3)
  - CARDIOACTIVE DRUG LEVEL INCREASED [None]
  - DELIRIUM [None]
  - RENAL FAILURE [None]
